FAERS Safety Report 11369539 (Version 1)
Quarter: 2015Q3

REPORT INFORMATION
  Report Type: Spontaneous
  Country: US (occurrence: US)
  Receive Date: 20150812
  Receipt Date: 20150812
  Transmission Date: 20151125
  Serious: No
  Sender: FDA-Public Use
  Company Number: US-JNJFOC-20150703975

PATIENT
  Age: 55 Year
  Sex: Male
  Weight: 99.79 kg

DRUGS (9)
  1. LOSARTAN. [Concomitant]
     Active Substance: LOSARTAN
     Indication: BLOOD CHOLESTEROL INCREASED
     Route: 065
  2. GLYBURIDE. [Concomitant]
     Active Substance: GLYBURIDE
     Indication: DIABETES MELLITUS
     Route: 065
  3. INVOKANA [Suspect]
     Active Substance: CANAGLIFLOZIN
     Indication: TYPE 2 DIABETES MELLITUS
     Route: 048
     Dates: start: 20150614
  4. CARVEDILOL. [Concomitant]
     Active Substance: CARVEDILOL
     Indication: HYPERTENSION
     Route: 065
  5. ACARBOSE. [Concomitant]
     Active Substance: ACARBOSE
     Indication: DIABETES MELLITUS
     Route: 065
  6. INSULIN [Concomitant]
     Active Substance: INSULIN NOS
     Indication: DIABETES MELLITUS
     Dosage: SLIDING SCALE
     Route: 065
  7. METFORMIN [Concomitant]
     Active Substance: METFORMIN HYDROCHLORIDE
     Indication: DIABETES MELLITUS
     Dosage: 850 MG TWICE DAILY
     Route: 065
  8. ATORVASTATIN [Concomitant]
     Active Substance: ATORVASTATIN
     Indication: BLOOD CHOLESTEROL INCREASED
     Route: 065
  9. INVOKANA [Suspect]
     Active Substance: CANAGLIFLOZIN
     Indication: TYPE 2 DIABETES MELLITUS
     Route: 048
     Dates: start: 20150502, end: 20150614

REACTIONS (2)
  - Drug dose omission [Not Recovered/Not Resolved]
  - Product packaging quantity issue [Unknown]

NARRATIVE: CASE EVENT DATE: 201505
